FAERS Safety Report 25995876 (Version 3)
Quarter: 2025Q4

REPORT INFORMATION
  Report Type: Spontaneous
  Country: EU (occurrence: EU)
  Receive Date: 20251104
  Receipt Date: 20251121
  Transmission Date: 20260118
  Serious: Yes (Other)
  Sender: ABBVIE
  Company Number: EU-AMK-292835

PATIENT
  Age: 24 Year
  Sex: Male
  Weight: 57 kg

DRUGS (5)
  1. SKYRIZI [Suspect]
     Active Substance: RISANKIZUMAB-RZAA
     Indication: Psoriasis
     Dosage: 1 DOSE
     Route: 058
     Dates: start: 20250627
  2. MIRTAZAPINE [Concomitant]
     Active Substance: MIRTAZAPINE
     Indication: Depression
     Dosage: MIRTALICH 15 MG ?DOSE FORM: FILM-COATED TABLETS
     Route: 065
  3. SERTRALINE HYDROCHLORIDE [Concomitant]
     Active Substance: SERTRALINE HYDROCHLORIDE
     Indication: Depression
     Dosage: SERTRALIN WINTHROP 50 MG ?DOSE FORM: FILM-COATED TABLETS
     Route: 065
     Dates: start: 202411
  4. METHYLPHENIDATE [Concomitant]
     Active Substance: METHYLPHENIDATE
     Indication: Attention deficit hyperactivity disorder
     Dosage: MEDIKINET ADULT 10 MG ?DOSE FORM: PROLONGED-RELEASE HARD CAPSULES
     Dates: start: 20250805
  5. Dominal [Concomitant]
     Indication: Sleep disorder
     Dosage: DOMINAL 40 MG ?DOSE FORM: COATED TABLETS
     Route: 065
     Dates: start: 20250805

REACTIONS (1)
  - Horner^s syndrome [Unknown]

NARRATIVE: CASE EVENT DATE: 20250919
